FAERS Safety Report 7664223-0 (Version None)
Quarter: 2011Q3

REPORT INFORMATION
  Report Type: 
  Country: None (occurrence: None)
  Receive Date: 20110806
  Receipt Date: 20110117
  Transmission Date: 20111222
  Serious: No
  Sender: FDA-Public Use
  Company Number: US-ABBOTT-11P-163-0698497-00

PATIENT
  Sex: Female
  Weight: 59.02 kg

DRUGS (5)
  1. NIASPAN [Suspect]
  2. NIASPAN [Suspect]
     Indication: HYPERLIPIDAEMIA
     Dates: start: 20100901
  3. ASPIRIN [Concomitant]
     Indication: PRODUCT USED FOR UNKNOWN INDICATION
  4. NIASPAN [Suspect]
  5. PREMARIN [Concomitant]
     Indication: PRODUCT USED FOR UNKNOWN INDICATION

REACTIONS (8)
  - RASH [None]
  - FEELING COLD [None]
  - BURNING SENSATION [None]
  - PERIPHERAL COLDNESS [None]
  - FLUSHING [None]
  - HYPOAESTHESIA [None]
  - PRURITUS [None]
  - HEADACHE [None]
